FAERS Safety Report 8449364-2 (Version None)
Quarter: 2012Q2

REPORT INFORMATION
  Report Type: 
  Country: None (occurrence: None)
  Receive Date: 20120619
  Receipt Date: 20120612
  Transmission Date: 20120825
  Serious: Yes (Other)
  Sender: FDA-Public Use
  Company Number: CA-ROCHE-1078760

PATIENT
  Sex: Female

DRUGS (4)
  1. XOLAIR [Suspect]
     Indication: ASTHMA
     Route: 058
     Dates: start: 20120221
  2. XOLAIR [Suspect]
     Dates: start: 20120515
  3. XOLAIR [Suspect]
     Dates: start: 20120417
  4. XOLAIR [Suspect]
     Dates: start: 20120330

REACTIONS (6)
  - MUSCLE SPASMS [None]
  - NASOPHARYNGITIS [None]
  - SCAPULA FRACTURE [None]
  - FALL [None]
  - RASH [None]
  - COUGH [None]
